FAERS Safety Report 10405652 (Version 1)
Quarter: 2014Q3

REPORT INFORMATION
  Report Type: Report from Study
  Country: US (occurrence: US)
  Receive Date: 20140825
  Receipt Date: 20140825
  Transmission Date: 20150326
  Serious: Yes (Other)
  Sender: FDA-Public Use
  Company Number: US-ROCHE-1453383

PATIENT
  Age: 62 Year
  Sex: Female

DRUGS (11)
  1. CETUXIMAB [Suspect]
     Active Substance: CETUXIMAB
     Indication: COLON CANCER
     Route: 065
  2. DACARBAZINE. [Suspect]
     Active Substance: DACARBAZINE
     Indication: COLON CANCER
     Route: 065
  3. IRINOTECAN [Suspect]
     Active Substance: IRINOTECAN
     Indication: COLON CANCER
     Route: 065
  4. BEVACIZUMAB [Suspect]
     Active Substance: BEVACIZUMAB
     Indication: COLON CANCER
     Dosage: 150-450 MG FOR 10 MONTHS
     Route: 065
  5. PANITUMUMAB [Suspect]
     Active Substance: PANITUMUMAB
     Indication: COLON CANCER
     Route: 065
  6. METHOTREXATE [Suspect]
     Active Substance: METHOTREXATE
     Indication: COLON CANCER
     Route: 065
  7. 5-FU [Suspect]
     Active Substance: FLUOROURACIL
     Indication: COLON CANCER
     Route: 065
  8. STREPTOZOCIN [Suspect]
     Active Substance: STREPTOZOCIN
     Indication: COLON CANCER
     Route: 065
  9. CAPECITABINE [Suspect]
     Active Substance: CAPECITABINE
     Indication: COLON CANCER
     Route: 065
  10. ZOLEDRONIC ACID [Suspect]
     Active Substance: ZOLEDRONIC ACID
     Indication: COLON CANCER
     Route: 065
  11. CISPLATIN. [Suspect]
     Active Substance: CISPLATIN
     Indication: COLON CANCER
     Route: 065

REACTIONS (10)
  - Hypertension [Recovered/Resolved]
  - Renal injury [Unknown]
  - Proteinuria [Recovered/Resolved]
  - Renal tubular disorder [Unknown]
  - Renal failure acute [Unknown]
  - Thrombotic microangiopathy [Unknown]
  - Anaemia [Recovered/Resolved]
  - Thrombocytopenia [Unknown]
  - Haematuria [Unknown]
  - Renal ischaemia [Unknown]
